FAERS Safety Report 11127114 (Version 2)
Quarter: 2015Q3

REPORT INFORMATION
  Report Type: Spontaneous
  Country: RU (occurrence: RU)
  Receive Date: 20150521
  Receipt Date: 20150716
  Transmission Date: 20151125
  Serious: Yes (Other)
  Sender: FDA-Public Use
  Company Number: RU-AMGEN-RUSSP2015048553

PATIENT
  Age: 70 Year
  Sex: Female

DRUGS (2)
  1. NPLATE [Suspect]
     Active Substance: ROMIPLOSTIM
     Indication: THROMBOCYTOPENIA
     Dosage: 0.56 UNK, QWK
     Route: 065
     Dates: start: 20150408
  2. NPLATE [Suspect]
     Active Substance: ROMIPLOSTIM
     Indication: HAEMORRHAGIC DISORDER

REACTIONS (3)
  - Neoplasm skin [Unknown]
  - Neoplasm progression [Unknown]
  - Erythema nodosum [Unknown]
